FAERS Safety Report 18469142 (Version 3)
Quarter: 2022Q3

REPORT INFORMATION
  Report Type: Spontaneous
  Country: US (occurrence: US)
  Receive Date: 20201105
  Receipt Date: 20220818
  Transmission Date: 20221027
  Serious: Yes (Other)
  Sender: FDA-Public Use
  Company Number: US-PFIZER INC-2020428401

PATIENT
  Age: 73 Year
  Sex: Female

DRUGS (2)
  1. IBRANCE [Suspect]
     Active Substance: PALBOCICLIB
     Dosage: 100 MG
     Dates: start: 20170811
  2. IBRANCE [Suspect]
     Active Substance: PALBOCICLIB
     Dosage: 100 MG
     Dates: start: 20200226

REACTIONS (6)
  - Nephrolithiasis [Unknown]
  - Second primary malignancy [Unknown]
  - Lung neoplasm malignant [Unknown]
  - Skin exfoliation [Unknown]
  - Oral pain [Unknown]
  - Pollakiuria [Unknown]
